FAERS Safety Report 9169143 (Version 1)
Quarter: 2013Q1

REPORT INFORMATION
  Report Type: Spontaneous
  Country: US (occurrence: US)
  Receive Date: 20130318
  Receipt Date: 20130318
  Transmission Date: 20140127
  Serious: No
  Sender: FDA-Public Use
  Company Number: US-BAYER-2013-024812

PATIENT
  Sex: Female

DRUGS (1)
  1. CIPRO [Suspect]

REACTIONS (3)
  - Fatigue [None]
  - Arthralgia [None]
  - Pain in extremity [None]
